FAERS Safety Report 6969540-5 (Version None)
Quarter: 2010Q3

REPORT INFORMATION
  Report Type: 
  Country: None (occurrence: None)
  Receive Date: 20100907
  Receipt Date: 20100907
  Transmission Date: 20110219
  Serious: Yes (Disabling)
  Sender: FDA-Public Use
  Company Number: None

PATIENT
  Age: 29 Year
  Sex: Male
  Weight: 90.7194 kg

DRUGS (1)
  1. ALPRAZOLAM [Suspect]
     Indication: ANXIETY
     Dosage: 2 PILLS TWICE A DAY PO
     Route: 048
     Dates: start: 20100725, end: 20100904

REACTIONS (5)
  - DIZZINESS [None]
  - DRY MOUTH [None]
  - HAEMATOCHEZIA [None]
  - NAUSEA [None]
  - NIGHTMARE [None]
